FAERS Safety Report 8797208 (Version 1)
Quarter: 2012Q4

REPORT INFORMATION
  Report Type: 
  Country: FR (occurrence: FR)
  Receive Date: 20120920
  Receipt Date: 20120920
  Transmission Date: 20130627
  Serious: Yes (Hospitalization)
  Sender: FDA-Public Use
  Company Number: FR-JNJFOC-20120906715

PATIENT
  Age: 69 Year
  Sex: Female

DRUGS (4)
  1. HALDOL [Suspect]
     Indication: PRODUCT USED FOR UNKNOWN INDICATION
     Route: 048
     Dates: start: 201108, end: 20120830
  2. EFFEXOR [Suspect]
     Indication: PRODUCT USED FOR UNKNOWN INDICATION
     Route: 048
     Dates: start: 201108, end: 20120830
  3. IMOVANE [Suspect]
     Indication: PRODUCT USED FOR UNKNOWN INDICATION
     Route: 048
     Dates: start: 201108, end: 20120830
  4. ZYPREXA [Suspect]
     Indication: PRODUCT USED FOR UNKNOWN INDICATION
     Route: 048
     Dates: start: 20110825, end: 20120830

REACTIONS (5)
  - Fall [Recovered/Resolved with Sequelae]
  - Laryngospasm [Recovered/Resolved with Sequelae]
  - Extrapyramidal disorder [Not Recovered/Not Resolved]
  - Dysphagia [Unknown]
  - Mutism [Recovered/Resolved]
